FAERS Safety Report 14183187 (Version 1)
Quarter: 2017Q4

REPORT INFORMATION
  Report Type: Spontaneous
  Country: CZ (occurrence: CZ)
  Receive Date: 20171113
  Receipt Date: 20171113
  Transmission Date: 20180321
  Serious: Yes (Death, Life-Threatening, Hospitalization, Other)
  Sender: FDA-Public Use
  Company Number: CZ-GLAXOSMITHKLINE-CZ2017171500

PATIENT
  Age: 14 Year
  Sex: Female
  Weight: 55 kg

DRUGS (2)
  1. RYTMONORM [Suspect]
     Active Substance: PROPAFENONE
     Indication: SUICIDE ATTEMPT
     Dosage: 1.5-3 G
     Route: 048
  2. VASOCARDIN [Interacting]
     Active Substance: METOPROLOL
     Indication: SUICIDE ATTEMPT
     Dosage: PROBABLY 1 G
     Route: 048

REACTIONS (22)
  - Cerebral haematoma [Unknown]
  - Loss of consciousness [Unknown]
  - Seizure [Unknown]
  - Cardiogenic shock [Recovered/Resolved]
  - Mydriasis [Unknown]
  - Acidosis [Unknown]
  - Electrocardiogram abnormal [Unknown]
  - Pulmonary oedema [Unknown]
  - Multiple organ dysfunction syndrome [Unknown]
  - Drug interaction [Fatal]
  - Overdose [Fatal]
  - Brain oedema [Unknown]
  - Ventricular tachycardia [Unknown]
  - Atrial fibrillation [Unknown]
  - Toxicity to various agents [Fatal]
  - Brain death [Fatal]
  - Cardiac arrest [Recovered/Resolved]
  - Cyanosis [Unknown]
  - Circulatory collapse [Recovered/Resolved]
  - Electrocardiogram QRS complex prolonged [Unknown]
  - Acute kidney injury [Unknown]
  - Rhabdomyolysis [Unknown]
